FAERS Safety Report 12921771 (Version 6)
Quarter: 2017Q1

REPORT INFORMATION
  Report Type: Report from Study
  Country: CA (occurrence: CA)
  Receive Date: 20161108
  Receipt Date: 20170314
  Transmission Date: 20170428
  Serious: Yes (Hospitalization)
  Sender: FDA-Public Use
  Company Number: CA-PFIZER INC-2016507510

PATIENT
  Age: 71 Year
  Sex: Male

DRUGS (14)
  1. ZOFRAN [Concomitant]
     Active Substance: ONDANSETRON HYDROCHLORIDE
     Indication: PREMEDICATION
     Dosage: UNK
     Dates: start: 20160928, end: 20160928
  2. VINCRISTINE SULFATE. [Suspect]
     Active Substance: VINCRISTINE SULFATE
     Indication: NON-HODGKIN^S LYMPHOMA
     Dosage: 1.4 MG/M2, (1 IN 21 D) (ON 28SEP2016 (AT 14:50), HE RECEIVED THE MOST RECENT DOSE (2 MG)
     Route: 042
     Dates: start: 20160704
  3. RITUXIMAB [Suspect]
     Active Substance: RITUXIMAB
     Indication: NON-HODGKIN^S LYMPHOMA
     Dosage: 375 MG/M2, (1 IN 21 D) (ON 28SEP2016 (AT 11:45), HE RECEIVED THE MOST RECENT DOSE (712 MG)
     Route: 042
     Dates: start: 20160704
  4. PROBIOTICS [Concomitant]
     Active Substance: PROBIOTICS NOS
     Dosage: UNK
  5. DOXORUBICIN HCL [Suspect]
     Active Substance: DOXORUBICIN HYDROCHLORIDE
     Indication: NON-HODGKIN^S LYMPHOMA
     Dosage: 50 MG/M2, (1 IN 21 D) (ON 28SEP2016 (AT 14:30), HE RECEIVED THE MOST RECENT DOSE (95 MG)
     Route: 042
     Dates: start: 20160704
  6. VENETOCLAX [Suspect]
     Active Substance: VENETOCLAX
     Indication: NON-HODGKIN^S LYMPHOMA
     Dosage: UNK, DAILY (ON 30SEP2016, HE RECEIVED THE MOST RECENT DOSE (100 MG) PRIOR TO EVENT ONSET)
     Route: 048
     Dates: start: 20160707
  7. CYCLOPHOSPHAMIDE. [Suspect]
     Active Substance: CYCLOPHOSPHAMIDE
     Indication: NON-HODGKIN^S LYMPHOMA
     Dosage: 750 MG/M2, (1 IN 21 D) (ON 28SEP2016 (AT 15:05), HE RECEIVED THE MOST RECENT DOSE (1425 MG)
     Route: 042
     Dates: start: 20160704
  8. PREDNISONE. [Suspect]
     Active Substance: PREDNISONE
     Indication: NON-HODGKIN^S LYMPHOMA
     Dosage: 100 MG, UNK (ON 30SEP2016, HE RECEIVED THE MOST RECENT DOSE (100 MG) PRIOR TO EVENT ONSET.
     Route: 048
     Dates: start: 20160704
  9. PANTOLOC [Concomitant]
     Active Substance: PANTOPRAZOLE SODIUM
     Indication: DYSPEPSIA
     Dosage: UNK
     Dates: start: 20160609
  10. ONDANSETRON [Concomitant]
     Active Substance: ONDANSETRON
     Indication: PREMEDICATION
     Dosage: UNK
     Dates: start: 20160907, end: 20160907
  11. TYLENOL [Concomitant]
     Active Substance: ACETAMINOPHEN
     Indication: PREMEDICATION
     Dosage: UNK
     Dates: start: 20160907
  12. BENADRYL [Concomitant]
     Active Substance: DIPHENHYDRAMINE HYDROCHLORIDE
     Indication: PREMEDICATION
     Dosage: UNK
     Dates: start: 20160928, end: 20160928
  13. BENADRYL [Concomitant]
     Active Substance: DIPHENHYDRAMINE HYDROCHLORIDE
     Dosage: UNK
     Dates: start: 20161031, end: 20161031
  14. ZOFRAN [Concomitant]
     Active Substance: ONDANSETRON HYDROCHLORIDE
     Dosage: UNK
     Dates: start: 20161031, end: 20161031

REACTIONS (1)
  - Herpes simplex [Recovered/Resolved]

NARRATIVE: CASE EVENT DATE: 20161001
